FAERS Safety Report 5710218-3 (Version None)
Quarter: 2008Q2

REPORT INFORMATION
  Report Type: 
  Country: None (occurrence: None)
  Receive Date: 20080418
  Receipt Date: 20080410
  Transmission Date: 20081010
  Serious: Yes (Other)
  Sender: FDA-Public Use
  Company Number: US-TYCO HEALTHCARE/MALLINCKRODT-T200800607

PATIENT

DRUGS (1)
  1. METHYLIN [Suspect]
     Indication: AUTISM
     Route: 048
     Dates: start: 20071101, end: 20080301

REACTIONS (3)
  - FRACTURE [None]
  - SHOCK [None]
  - SOMNOLENCE [None]
